FAERS Safety Report 8548937-6 (Version None)
Quarter: 2012Q3

REPORT INFORMATION
  Report Type: 
  Country: None (occurrence: None)
  Receive Date: 20120730
  Receipt Date: 20120718
  Transmission Date: 20120928
  Serious: Yes (Life-Threatening, Hospitalization)
  Sender: FDA-Public Use
  Company Number: FR-BRISTOL-MYERS SQUIBB COMPANY-16788101

PATIENT
  Age: 82 Year
  Sex: Male

DRUGS (4)
  1. HYDREA [Suspect]
     Route: 048
     Dates: start: 20100901, end: 20120316
  2. ARICEPT [Concomitant]
  3. LOVENOX [Concomitant]
  4. CITALOPRAM HYDROBROMIDE [Concomitant]

REACTIONS (1)
  - PANCYTOPENIA [None]
